FAERS Safety Report 8613771 (Version 4)
Quarter: 2014Q2

REPORT INFORMATION
  Report Type: Spontaneous
  Country: US (occurrence: US)
  Receive Date: 20120614
  Receipt Date: 20140612
  Transmission Date: 20141212
  Serious: Yes (Hospitalization, Disabling, Other)
  Sender: FDA-Public Use
  Company Number: US-ASTRAZENECA-2012SE36383

PATIENT
  Age: 57 Year
  Sex: Female
  Weight: 83.5 kg

DRUGS (21)
  1. NEXIUM [Suspect]
     Indication: GASTROOESOPHAGEAL REFLUX DISEASE
     Dosage: 1 PILL PER DAY
     Route: 048
  2. NEXIUM [Suspect]
     Indication: GASTROOESOPHAGEAL REFLUX DISEASE
     Route: 048
     Dates: start: 2003, end: 2012
  3. NEXIUM [Suspect]
     Indication: GASTROOESOPHAGEAL REFLUX DISEASE
     Route: 048
     Dates: start: 20041104
  4. OMEPRAZOLE [Suspect]
     Route: 048
  5. OMEPRAZOLE [Suspect]
     Route: 048
     Dates: start: 20030214
  6. PROTONIX [Concomitant]
     Indication: GASTROOESOPHAGEAL REFLUX DISEASE
  7. PROTONIX [Concomitant]
     Indication: GASTROOESOPHAGEAL REFLUX DISEASE
     Dates: start: 2000
  8. TUMS [Concomitant]
  9. PEPTO BISMOL [Concomitant]
  10. MYLANTA [Concomitant]
  11. TRAMADOL [Concomitant]
  12. ASPIRIN [Concomitant]
  13. ZANTAC [Concomitant]
  14. ROLAIDS [Concomitant]
  15. MILK OF MAGNESIA [Concomitant]
  16. LISINO HCTZ [Concomitant]
     Indication: HYPERTENSION
  17. PRAVASTATIN [Concomitant]
     Indication: BLOOD CHOLESTEROL ABNORMAL
  18. FLEXERIL [Concomitant]
     Indication: MYALGIA
  19. PRO AIR HFA [Concomitant]
     Indication: DYSPNOEA
  20. VITAMIN D3 [Concomitant]
     Indication: BONE LOSS
  21. OSCAL D3 [Concomitant]
     Indication: BONE LOSS

REACTIONS (19)
  - Cervical spinal stenosis [Unknown]
  - Back disorder [Unknown]
  - Musculoskeletal discomfort [Unknown]
  - Spinal fusion acquired [Unknown]
  - Osteoporosis [Unknown]
  - Hand fracture [Unknown]
  - Calcium deficiency [Unknown]
  - Chronic obstructive pulmonary disease [Unknown]
  - Arthritis [Unknown]
  - Diabetes mellitus [Unknown]
  - Vitamin D deficiency [Unknown]
  - Osteoarthritis [Unknown]
  - Pain [Unknown]
  - Fibromyalgia [Unknown]
  - Osteopenia [Unknown]
  - Carpal tunnel syndrome [Unknown]
  - Rib fracture [Unknown]
  - Lower limb fracture [Unknown]
  - Fall [Unknown]
